FAERS Safety Report 13328810 (Version 1)
Quarter: 2017Q1

REPORT INFORMATION
  Report Type: Spontaneous
  Country: RO (occurrence: RO)
  Receive Date: 20170313
  Receipt Date: 20170313
  Transmission Date: 20170428
  Serious: Yes (Hospitalization)
  Sender: FDA-Public Use
  Company Number: RO-ROCHE-1900533

PATIENT
  Age: 7 Month
  Sex: Female

DRUGS (2)
  1. CEFTRIAXONE. [Suspect]
     Active Substance: CEFTRIAXONE
     Indication: PNEUMONIA
     Route: 042
  2. CEFUROXIME. [Concomitant]
     Active Substance: CEFUROXIME

REACTIONS (3)
  - Neutrophil count increased [Unknown]
  - Drug ineffective [Unknown]
  - Lymphadenopathy [Unknown]
